FAERS Safety Report 14270413 (Version 2)
Quarter: 2017Q4

REPORT INFORMATION
  Report Type: Report from Study
  Country: GB (occurrence: GB)
  Receive Date: 20171211
  Receipt Date: 20171215
  Transmission Date: 20180321
  Serious: Yes (Death, Other)
  Sender: FDA-Public Use
  Company Number: GB-PFIZER INC-2017520046

PATIENT
  Age: 32 Year
  Sex: Male

DRUGS (2)
  1. PREGABALIN. [Suspect]
     Active Substance: PREGABALIN
     Dosage: UNK
  2. PROMAZINE [Suspect]
     Active Substance: PROMAZINE
     Dosage: UNK

REACTIONS (1)
  - Toxicity to various agents [Fatal]
